FAERS Safety Report 24839728 (Version 7)
Quarter: 2025Q2

REPORT INFORMATION
  Report Type: Report from Study
  Country: CA (occurrence: CA)
  Receive Date: 20250114
  Receipt Date: 20250609
  Transmission Date: 20250717
  Serious: Yes (Hospitalization)
  Sender: NOVARTIS
  Company Number: CA-002147023-NVSC2025CA004413

PATIENT
  Age: 72 Year
  Sex: Female

DRUGS (3)
  1. FEMARA [Suspect]
     Active Substance: LETROZOLE
     Indication: Breast cancer metastatic
     Dosage: 2.5 MG, QD
     Route: 048
  2. KISQALI [Suspect]
     Active Substance: RIBOCICLIB SUCCINATE
     Indication: Breast cancer metastatic
     Dosage: 600 MG, QD (DAILY FOR 21 DAYS FOLLOWED BY 7 DAYS BREAK)
     Route: 048
     Dates: start: 20250225
  3. KISQALI [Suspect]
     Active Substance: RIBOCICLIB SUCCINATE
     Route: 048

REACTIONS (14)
  - Dizziness [Unknown]
  - Syncope [Unknown]
  - Nausea [Unknown]
  - Ill-defined disorder [Unknown]
  - Fall [Unknown]
  - Malaise [Unknown]
  - Joint injury [Unknown]
  - Arthralgia [Unknown]
  - Pain [Unknown]
  - Decreased appetite [Unknown]
  - Feeling abnormal [Unknown]
  - Cystitis [Recovered/Resolved]
  - Urinary tract infection [Unknown]
  - Inappropriate schedule of product administration [Unknown]

NARRATIVE: CASE EVENT DATE: 20250201
